FAERS Safety Report 5867708-2 (Version None)
Quarter: 2008Q3

REPORT INFORMATION
  Report Type: 
  Country: None (occurrence: None)
  Receive Date: 20080902
  Receipt Date: 20080122
  Transmission Date: 20090109
  Serious: No
  Sender: FDA-Public Use
  Company Number: US-ABBOTT-08P-163-0434931-00

PATIENT
  Sex: Female

DRUGS (2)
  1. DEPAKOTE ER [Suspect]
     Indication: CONVULSION
     Route: 048
  2. ERYTHROMYCIN [Suspect]
     Indication: INFECTION
     Route: 048

REACTIONS (3)
  - DIARRHOEA [None]
  - INFECTION [None]
  - MEDICATION RESIDUE [None]
